FAERS Safety Report 20529959 (Version 1)
Quarter: 2022Q1

REPORT INFORMATION
  Report Type: Spontaneous
  Country: FR (occurrence: None)
  Receive Date: 20220301
  Receipt Date: 20220301
  Transmission Date: 20220424
  Serious: Yes (Hospitalization)
  Sender: FDA-Public Use
  Company Number: None

PATIENT
  Age: 32 Year
  Sex: Female
  Weight: 45 kg

DRUGS (1)
  1. VANCOMYCIN [Suspect]
     Active Substance: VANCOMYCIN
     Indication: Antibiotic prophylaxis
     Dosage: UNKNOWN
     Route: 041
     Dates: start: 20220105, end: 20220105

REACTIONS (2)
  - Urticaria [Recovered/Resolved]
  - Erythrosis [Recovered/Resolved]

NARRATIVE: CASE EVENT DATE: 20220105
